FAERS Safety Report 7987145-4 (Version None)
Quarter: 2011Q4

REPORT INFORMATION
  Report Type: 
  Country: None (occurrence: None)
  Receive Date: 20111216
  Receipt Date: 20110322
  Transmission Date: 20120403
  Serious: Yes (Other)
  Sender: FDA-Public Use
  Company Number: US-BRISTOL-MYERS SQUIBB COMPANY-15630056

PATIENT
  Sex: Female

DRUGS (1)
  1. ABILIFY [Suspect]
     Indication: PSYCHOTIC DISORDER
     Dosage: DECREASED TO 1MG AND 0.5MG AND THEN DISCONTINUED

REACTIONS (1)
  - PARKINSONISM [None]
